FAERS Safety Report 7417041-2 (Version None)
Quarter: 2011Q2

REPORT INFORMATION
  Report Type: 
  Country: None (occurrence: None)
  Receive Date: 20110406
  Receipt Date: 20110322
  Transmission Date: 20111010
  Serious: Yes (Hospitalization)
  Sender: FDA-Public Use
  Company Number: AUR-APL-2011-01139

PATIENT
  Age: 64 Year
  Sex: Female

DRUGS (1)
  1. MELOXICAM [Suspect]

REACTIONS (1)
  - MUSCULOSKELETAL DISORDER [None]
